FAERS Safety Report 9044771 (Version 1)
Quarter: 2013Q1

REPORT INFORMATION
  Report Type: Report from Study
  Country: US (occurrence: US)
  Receive Date: 20130130
  Receipt Date: 20130130
  Transmission Date: 20140127
  Serious: No
  Sender: FDA-Public Use
  Company Number: US-ABBOTT-12P-163-0963883-00

PATIENT
  Age: 55 Year
  Sex: Female

DRUGS (5)
  1. HUMIRA 40 MG/0.8 ML PEN [Suspect]
     Indication: PSORIASIS
     Route: 058
     Dates: start: 2009
  2. ESTROGEN [Concomitant]
     Indication: PRODUCT USED FOR UNKNOWN INDICATION
     Dosage: 0.45MG DAILY
  3. NEXIUM [Concomitant]
     Indication: GASTROOESOPHAGEAL REFLUX DISEASE
  4. HYZAAR [Concomitant]
     Indication: HYPERTENSION
  5. K-DUR [Concomitant]
     Indication: BLOOD POTASSIUM DECREASED
     Dosage: 40MEQ DAILY

REACTIONS (5)
  - Incorrect dose administered [Not Recovered/Not Resolved]
  - Blood potassium decreased [Recovered/Resolved]
  - Injection site pain [Recovered/Resolved]
  - Headache [Recovered/Resolved]
  - Hypertension [Recovered/Resolved]
